FAERS Safety Report 5934637-5 (Version None)
Quarter: 2008Q4

REPORT INFORMATION
  Report Type: 
  Country: None (occurrence: None)
  Receive Date: 20081029
  Receipt Date: 20081020
  Transmission Date: 20090506
  Serious: Yes (Hospitalization, Other)
  Sender: FDA-Public Use
  Company Number: US-PFIZER INC-2008088333

PATIENT
  Sex: Female
  Weight: 78.5 kg

DRUGS (11)
  1. XANAX [Suspect]
     Indication: ANXIETY
  2. ATARAX [Suspect]
  3. ZITHROMAX [Suspect]
  4. PENICILLIN [Suspect]
  5. HYDROXYZINE [Suspect]
     Indication: PRURITUS
     Dates: start: 20080101
  6. PREDNISONE TAB [Suspect]
     Indication: HYPERSENSITIVITY
     Dates: start: 20080901, end: 20080901
  7. MAXZIDE [Concomitant]
  8. MONTELUKAST SODIUM [Concomitant]
  9. EFFEXOR [Concomitant]
  10. SYNTHROID [Concomitant]
  11. LISINOPRIL [Concomitant]
     Dates: end: 20060101

REACTIONS (11)
  - COELIAC DISEASE [None]
  - DRY SKIN [None]
  - FEELING DRUNK [None]
  - HYPERSENSITIVITY [None]
  - HYPERTENSION [None]
  - MULTIPLE ALLERGIES [None]
  - PRURITUS [None]
  - RASH MACULO-PAPULAR [None]
  - URTICARIA [None]
  - WEIGHT DECREASED [None]
  - WHEEZING [None]
